FAERS Safety Report 8239645-X (Version None)
Quarter: 2012Q1

REPORT INFORMATION
  Report Type: 
  Country: None (occurrence: None)
  Receive Date: 20120328
  Receipt Date: 20120316
  Transmission Date: 20120608
  Serious: Yes (Hospitalization)
  Sender: FDA-Public Use
  Company Number: GB-JNJFOC-20120308552

PATIENT
  Sex: Male
  Weight: 44.5 kg

DRUGS (2)
  1. ERYTHROMYCIN [Concomitant]
  2. REMICADE [Suspect]
     Indication: CROHN'S DISEASE
     Route: 042
     Dates: start: 20110203

REACTIONS (2)
  - DEVICE RELATED INFECTION [None]
  - PNEUMONIA [None]
